FAERS Safety Report 15899398 (Version 1)
Quarter: 2019Q1

REPORT INFORMATION
  Report Type: Spontaneous
  Country: US (occurrence: US)
  Receive Date: 20190110
  Receipt Date: 20190110
  Transmission Date: 20190417
  Serious: No
  Sender: FDA-Public Use
  Company Number: None

PATIENT
  Age: 61 Year
  Sex: Female

DRUGS (3)
  1. IBANDRONATE SODIUM TABS [Suspect]
     Active Substance: IBANDRONATE SODIUM
     Indication: PRADER-WILLI SYNDROME
     Route: 048
     Dates: start: 201808
  2. IBANDRONATE SODIUM TABS [Suspect]
     Active Substance: IBANDRONATE SODIUM
     Indication: SPINAL OSTEOARTHRITIS
  3. IBANDRONATE SODIUM TABS [Suspect]
     Active Substance: IBANDRONATE SODIUM
     Indication: SENILE OSTEOPOROSIS

REACTIONS (1)
  - Renal pain [None]
